FAERS Safety Report 7307613-8 (Version None)
Quarter: 2011Q1

REPORT INFORMATION
  Report Type: 
  Country: None (occurrence: None)
  Receive Date: 20110223
  Receipt Date: 20110217
  Transmission Date: 20110831
  Serious: Yes (Death, Other)
  Sender: FDA-Public Use
  Company Number: IT-CELGENEUS-083-C5013-11021501

PATIENT
  Sex: Female
  Weight: 60 kg

DRUGS (3)
  1. PREDNISONE [Suspect]
     Indication: MULTIPLE MYELOMA
     Route: 048
     Dates: start: 20080130, end: 20081013
  2. CC-5013 [Suspect]
     Indication: MULTIPLE MYELOMA
     Route: 048
     Dates: start: 20080131, end: 20081129
  3. MELPHALAN [Suspect]
     Indication: MULTIPLE MYELOMA
     Route: 048
     Dates: start: 20080130, end: 20081013

REACTIONS (1)
  - CHRONIC MYELOMONOCYTIC LEUKAEMIA [None]
